FAERS Safety Report 11173788 (Version 1)
Quarter: 2015Q2

REPORT INFORMATION
  Report Type: Spontaneous
  Country: US (occurrence: None)
  Receive Date: 20150608
  Receipt Date: 20150608
  Transmission Date: 20150821
  Serious: Yes (Hospitalization)
  Sender: FDA-Public Use
  Company Number: None

PATIENT
  Age: 76 Year
  Sex: Female
  Weight: 71.22 kg

DRUGS (2)
  1. ROSUVASTATIN [Suspect]
     Active Substance: ROSUVASTATIN
  2. PROPAFENONE. [Concomitant]
     Active Substance: PROPAFENONE

REACTIONS (5)
  - Chromaturia [None]
  - Diabetes mellitus [None]
  - Pruritus [None]
  - Decreased appetite [None]
  - Rash [None]

NARRATIVE: CASE EVENT DATE: 20150601
